FAERS Safety Report 5057927-X (Version None)
Quarter: 2006Q2

REPORT INFORMATION
  Report Type: 
  Country: None (occurrence: None)
  Receive Date: 20060627
  Receipt Date: 20060306
  Transmission Date: 20061013
  Serious: No
  Sender: FDA-Public Use
  Company Number: SP00790

PATIENT
  Age: 41 Year
  Sex: Female
  Weight: 59.4212 kg

DRUGS (2)
  1. XIFAXAN [Suspect]
     Indication: CROHN'S DISEASE
     Dosage: 400MG/QD,ORAL
     Route: 048
     Dates: start: 20060223, end: 20060304
  2. COLAZAL [Concomitant]

REACTIONS (5)
  - DIFFICULTY IN WALKING [None]
  - HYPOAESTHESIA [None]
  - JOINT SWELLING [None]
  - OEDEMA PERIPHERAL [None]
  - SKIN DISCOLOURATION [None]
